FAERS Safety Report 21000301 (Version 1)
Quarter: 2022Q2

REPORT INFORMATION
  Report Type: Spontaneous
  Country: US (occurrence: None)
  Receive Date: 20220623
  Receipt Date: 20220623
  Transmission Date: 20220721
  Serious: Yes (Hospitalization)
  Sender: FDA-Public Use
  Company Number: None

PATIENT
  Age: 79 Year
  Sex: Male
  Weight: 88.2 kg

DRUGS (7)
  1. MAGNESIUM CITRATE [Suspect]
     Active Substance: MAGNESIUM CITRATE
     Indication: Constipation
     Dosage: OTHER QUANTITY : 10 OUNCE(S);?FREQUENCY : DAILY;?
     Dates: start: 20220603, end: 20220606
  2. GLYBURIDE [Concomitant]
     Active Substance: GLYBURIDE
  3. METFORMEN [Concomitant]
  4. LOSARTIN POTASSIUM [Concomitant]
  5. SPIRONOLOCTON [Concomitant]
  6. FLOWVENT [Concomitant]
  7. COMBIVENT [Concomitant]
     Active Substance: ALBUTEROL SULFATE\IPRATROPIUM BROMIDE

REACTIONS (3)
  - Therapy non-responder [None]
  - Abdominal pain upper [None]
  - Gastrointestinal pain [None]

NARRATIVE: CASE EVENT DATE: 20220606
